FAERS Safety Report 4449235-2 (Version None)
Quarter: 2004Q3

REPORT INFORMATION
  Report Type: 
  Country: None (occurrence: None)
  Receive Date: 20040910
  Receipt Date: 20040825
  Transmission Date: 20050211
  Serious: Yes (Hospitalization)
  Sender: FDA-Public Use
  Company Number: 2004-BP-06939NB

PATIENT
  Age: 61 Year
  Sex: Male

DRUGS (6)
  1. MICARDIS [Suspect]
     Indication: HYPERTENSION
     Dosage: 20 MG ( 20 MG ) PO
     Route: 048
     Dates: start: 20040529, end: 20040705
  2. LANIRAPID (METILDIGOXIN) (TA) [Suspect]
     Indication: CARDIAC FAILURE
     Dosage: 0.05 MG ( 0.05 MG) PO
     Route: 048
     Dates: start: 20040618, end: 20040705
  3. LASIX [Concomitant]
  4. CIBENOL (CIBENZOLINE SUCCINATE) [Concomitant]
  5. WARFARIN (WARFARIN) [Concomitant]
  6. CARVEDILOL [Concomitant]

REACTIONS (3)
  - HEPATIC FUNCTION ABNORMAL [None]
  - PYREXIA [None]
  - RENAL IMPAIRMENT [None]
